FAERS Safety Report 8517016-6 (Version None)
Quarter: 2012Q3

REPORT INFORMATION
  Report Type: 
  Country: None (occurrence: None)
  Receive Date: 20120718
  Receipt Date: 20120711
  Transmission Date: 20120928
  Serious: Yes (Other)
  Sender: FDA-Public Use
  Company Number: US-NOVOPROD-353655

PATIENT
  Age: 71 Year
  Sex: Female
  Weight: 90.703 kg

DRUGS (5)
  1. ALLEGRA [Concomitant]
     Indication: HYPERSENSITIVITY
     Dosage: TAKEN PERIODICALLY
     Route: 065
  2. VAGIFEM [Suspect]
     Indication: VULVOVAGINAL DRYNESS
     Dosage: 10 MCG, TWICE WEEKLY
     Route: 067
     Dates: end: 20120603
  3. VERAPAMIL [Concomitant]
     Indication: SUPRAVENTRICULAR TACHYCARDIA
     Dosage: UNKNOWN
     Route: 065
     Dates: start: 19960101
  4. VAGIFEM [Suspect]
     Indication: POSTMENOPAUSE
  5. VAGIFEM [Suspect]
     Indication: PROPHYLAXIS

REACTIONS (3)
  - JOINT SWELLING [None]
  - RASH ERYTHEMATOUS [None]
  - HYPOAESTHESIA [None]
